FAERS Safety Report 5158991-X (Version None)
Quarter: 2006Q4

REPORT INFORMATION
  Report Type: 
  Country: None (occurrence: None)
  Receive Date: 20061117
  Receipt Date: 20061108
  Transmission Date: 20070319
  Serious: Yes (Other)
  Sender: FDA-Public Use
  Company Number: 232358

PATIENT

DRUGS (2)
  1. XOLAIR [Suspect]
     Indication: DRUG USE FOR UNKNOWN INDICATION
  2. OMALIZUMAB (OMALIZUMAB) PWDR + SOLVENT, INJECTION SOLN, 150MG [Suspect]

REACTIONS (3)
  - OSTEOPOROSIS [None]
  - OSTEOPOROTIC FRACTURE [None]
  - SPINAL FRACTURE [None]
